FAERS Safety Report 18993283 (Version 3)
Quarter: 2021Q3

REPORT INFORMATION
  Report Type: Spontaneous
  Country: US (occurrence: US)
  Receive Date: 20210310
  Receipt Date: 20210825
  Transmission Date: 20211014
  Serious: Yes (Other)
  Sender: FDA-Public Use
  Company Number: US-BAYER-2021-102878

PATIENT
  Age: 45 Year
  Sex: Male

DRUGS (10)
  1. JIVI [Suspect]
     Active Substance: DAMOCTOCOG ALFA PEGOL
     Dosage: 3000 IU
     Route: 042
     Dates: start: 20210308, end: 20210308
  2. JIVI [Suspect]
     Active Substance: DAMOCTOCOG ALFA PEGOL
     Dosage: 3000 U
     Route: 042
  3. JIVI [Suspect]
     Active Substance: DAMOCTOCOG ALFA PEGOL
     Dosage: UNK
  4. JIVI [Suspect]
     Active Substance: DAMOCTOCOG ALFA PEGOL
     Dosage: 3000 IU
     Route: 042
     Dates: start: 20210302, end: 20210302
  5. JIVI [Suspect]
     Active Substance: DAMOCTOCOG ALFA PEGOL
     Dosage: 1 DF, ONCE; FOR RIGHT ANKLE BLEED
     Dates: start: 20210819, end: 20210819
  6. JIVI [Suspect]
     Active Substance: DAMOCTOCOG ALFA PEGOL
     Dosage: 1 DF, ONCE; PREVENTION DOSE FOR VACCINES
     Dates: start: 20210729, end: 20210729
  7. JIVI [Suspect]
     Active Substance: DAMOCTOCOG ALFA PEGOL
     Dosage: 1 DF, ONCE; FOR LEFT THIGH BLEED
     Dates: start: 20210801, end: 20210801
  8. COVID?19 VACCINE [Concomitant]
     Dosage: 1 DF, ONCE; FIRST DOSE
     Dates: start: 20210430, end: 20210430
  9. JIVI [Suspect]
     Active Substance: DAMOCTOCOG ALFA PEGOL
     Dosage: 1 DF, ONCE; TO TREAT RIGHT FINGER BLEED
     Route: 042
     Dates: start: 20210419, end: 20210419
  10. JIVI [Suspect]
     Active Substance: DAMOCTOCOG ALFA PEGOL
     Dosage: 1 DF, ONCE; TO PREVENT BLEED
     Route: 042
     Dates: start: 20210430, end: 20210430

REACTIONS (5)
  - Haemarthrosis [Recovered/Resolved]
  - Haemarthrosis [Recovered/Resolved]
  - Haemorrhage [Recovered/Resolved]
  - Haemarthrosis [Recovered/Resolved]
  - Haemorrhage [Recovered/Resolved]

NARRATIVE: CASE EVENT DATE: 20210302
